FAERS Safety Report 26146756 (Version 2)
Quarter: 2025Q4

REPORT INFORMATION
  Report Type: Spontaneous
  Country: JP (occurrence: JP)
  Receive Date: 20251211
  Receipt Date: 20251217
  Transmission Date: 20260117
  Serious: Yes (Hospitalization)
  Sender: NOVARTIS
  Company Number: JP-002147023-NVSC2025JP189114

PATIENT
  Age: 64 Year
  Sex: Female

DRUGS (6)
  1. PAZOPANIB [Interacting]
     Active Substance: PAZOPANIB
     Indication: Metastatic renal cell carcinoma
     Dosage: UNK
     Route: 048
  2. PITAVASTATIN [Suspect]
     Active Substance: PITAVASTATIN
     Indication: Hyperlipidaemia
     Dosage: UNK
     Route: 065
  3. AXITINIB [Concomitant]
     Active Substance: AXITINIB
     Indication: Metastatic renal cell carcinoma
     Dosage: UNK
     Route: 065
     Dates: start: 2020, end: 2021
  4. NIVOLUMAB [Concomitant]
     Active Substance: NIVOLUMAB
     Indication: Metastatic renal cell carcinoma
     Dosage: UNK
     Route: 065
     Dates: start: 2021
  5. CANDESARTAN [Concomitant]
     Active Substance: CANDESARTAN
     Indication: Hypertension
     Dosage: UNK
     Route: 065
  6. LEVOTHYROXINE SODIUM [Concomitant]
     Active Substance: LEVOTHYROXINE SODIUM
     Indication: Product used for unknown indication
     Dosage: UNK
     Route: 065

REACTIONS (8)
  - Drug eruption [Recovering/Resolving]
  - Hepatic function abnormal [Recovering/Resolving]
  - Infection [Recovering/Resolving]
  - Pyrexia [Recovering/Resolving]
  - Decreased appetite [Recovering/Resolving]
  - Myositis [Unknown]
  - Muscular weakness [Recovering/Resolving]
  - Drug interaction [Unknown]
